FAERS Safety Report 12051875 (Version 1)
Quarter: 2016Q1

REPORT INFORMATION
  Report Type: Spontaneous
  Country: BR (occurrence: BR)
  Receive Date: 20160209
  Receipt Date: 20160209
  Transmission Date: 20160526
  Serious: Yes (Other)
  Sender: FDA-Public Use
  Company Number: BR-MERZ NORTH AMERICA, INC.-16MRZ-00092

PATIENT
  Age: 67 Year
  Sex: Male
  Weight: 69 kg

DRUGS (3)
  1. SERTRALINE [Concomitant]
     Active Substance: SERTRALINE HYDROCHLORIDE
     Indication: DEPRESSION
     Dates: start: 2003
  2. XEOMIN [Suspect]
     Active Substance: INCOBOTULINUMTOXINA
     Indication: TORTICOLLIS
     Route: 030
     Dates: start: 2015, end: 2015
  3. RIVOTRIL [Concomitant]
     Active Substance: CLONAZEPAM
     Indication: NECK PAIN
     Dates: start: 2003

REACTIONS (1)
  - Gastrointestinal carcinoma [Unknown]

NARRATIVE: CASE EVENT DATE: 201511
